FAERS Safety Report 11297719 (Version 1)
Quarter: 2015Q3

REPORT INFORMATION
  Report Type: Spontaneous
  Country: US (occurrence: US)
  Receive Date: 20150722
  Receipt Date: 20150722
  Transmission Date: 20151125
  Serious: No
  Sender: FDA-Public Use
  Company Number: US-ELI_LILLY_AND_COMPANY-US200907005371

PATIENT
  Sex: Female

DRUGS (6)
  1. HUMATROPE [Suspect]
     Active Substance: SOMATROPIN
  2. HUMATROPE [Suspect]
     Active Substance: SOMATROPIN
  3. ULTRACET [Concomitant]
     Active Substance: ACETAMINOPHEN\TRAMADOL HYDROCHLORIDE
  4. CELEBREX [Concomitant]
     Active Substance: CELECOXIB
     Indication: ARTHRITIS
  5. HUMATROPE [Suspect]
     Active Substance: SOMATROPIN
  6. HUMATROPE [Suspect]
     Active Substance: SOMATROPIN
     Dosage: UNK, UNK
     Dates: start: 200904

REACTIONS (4)
  - Joint swelling [Not Recovered/Not Resolved]
  - Alanine aminotransferase increased [Not Recovered/Not Resolved]
  - Weight decreased [Not Recovered/Not Resolved]
  - Muscle strain [Recovering/Resolving]

NARRATIVE: CASE EVENT DATE: 2009
